FAERS Safety Report 15745731 (Version 1)
Quarter: 2018Q4

REPORT INFORMATION
  Report Type: Report from Study
  Country: None (occurrence: CA)
  Receive Date: 20181220
  Receipt Date: 20181220
  Transmission Date: 20190205
  Serious: Yes (Other)
  Sender: FDA-Public Use
  Company Number: CA-ABBVIE-18K-028-2597130-00

PATIENT
  Sex: Female

DRUGS (2)
  1. HUMIRA [Suspect]
     Active Substance: ADALIMUMAB
     Indication: CROHN^S DISEASE
     Route: 058
     Dates: start: 20160519
  2. DOMPERIDONE [Concomitant]
     Active Substance: DOMPERIDONE
     Indication: PRODUCT USED FOR UNKNOWN INDICATION

REACTIONS (9)
  - Impaired quality of life [Unknown]
  - Coagulopathy [Not Recovered/Not Resolved]
  - Obstruction [Not Recovered/Not Resolved]
  - Liver disorder [Not Recovered/Not Resolved]
  - Medical device site haemorrhage [Not Recovered/Not Resolved]
  - Vomiting [Not Recovered/Not Resolved]
  - Impaired work ability [Unknown]
  - Abdominal pain [Not Recovered/Not Resolved]
  - Skin irritation [Not Recovered/Not Resolved]
